FAERS Safety Report 9601957 (Version 1)
Quarter: 2013Q4

REPORT INFORMATION
  Report Type: Spontaneous
  Country: ES (occurrence: ES)
  Receive Date: 20131007
  Receipt Date: 20131007
  Transmission Date: 20140711
  Serious: Yes (Other)
  Sender: FDA-Public Use
  Company Number: ES-JNJFOC-20131000806

PATIENT
  Age: 36 Year
  Sex: Female

DRUGS (5)
  1. TOPIRAMATE [Suspect]
     Indication: EPILEPSY
     Route: 048
  2. VALPROIC ACID [Concomitant]
     Indication: EPILEPSY
     Route: 065
  3. PHENYTOIN [Concomitant]
     Indication: EPILEPSY
     Route: 065
  4. PHENOBARBITAL [Concomitant]
     Indication: EPILEPSY
     Route: 065
  5. CLONAZEPAM [Concomitant]
     Indication: EPILEPSY
     Route: 065

REACTIONS (2)
  - Calcinosis [Recovering/Resolving]
  - Metabolic acidosis [Unknown]
